FAERS Safety Report 9613084 (Version 1)
Quarter: 2013Q4

REPORT INFORMATION
  Report Type: Spontaneous
  Country: US (occurrence: None)
  Receive Date: 20131008
  Receipt Date: 20131008
  Transmission Date: 20140711
  Serious: No
  Sender: FDA-Public Use
  Company Number: DKLU1089592

PATIENT
  Age: 42 Year
  Sex: Male

DRUGS (1)
  1. PANHEMATIN [Suspect]

REACTIONS (4)
  - Pain [None]
  - Speech disorder [None]
  - Musculoskeletal stiffness [None]
  - Wrong technique in drug usage process [None]
